FAERS Safety Report 19856606 (Version 2)
Quarter: 2021Q4

REPORT INFORMATION
  Report Type: Spontaneous
  Country: US (occurrence: US)
  Receive Date: 20210920
  Receipt Date: 20211111
  Transmission Date: 20220303
  Serious: Yes (Other)
  Sender: FDA-Public Use
  Company Number: US-GLENMARK PHARMACEUTICALS-2021GMK067869

PATIENT

DRUGS (2)
  1. CLOTRIMAZOLE CREAM 1% [Suspect]
     Active Substance: CLOTRIMAZOLE
     Indication: Fungal skin infection
     Dosage: UNK, BID
     Route: 061
     Dates: start: 2020
  2. BACITRACIN [Concomitant]
     Active Substance: BACITRACIN
     Indication: Product used for unknown indication
     Dosage: UNK
     Route: 065

REACTIONS (2)
  - Peripheral ischaemia [Unknown]
  - Drug ineffective [Unknown]
